FAERS Safety Report 4507715-5 (Version None)
Quarter: 2004Q4

REPORT INFORMATION
  Report Type: 
  Country: None (occurrence: None)
  Receive Date: 20041015
  Receipt Date: 20030902
  Transmission Date: 20050328
  Serious: Yes (Other)
  Sender: FDA-Public Use
  Company Number: 2003037234

PATIENT
  Sex: Male
  Weight: 88.4514 kg

DRUGS (9)
  1. NEURONTIN [Suspect]
     Indication: NEUROPATHY
     Dosage: 900 MG (TID), ORAL
     Route: 048
     Dates: start: 20011213
  2. NORVASC [Suspect]
     Indication: HYPERTENSION
     Dosage: MG (DAILY), ORAL
     Route: 048
     Dates: start: 20020801, end: 20030601
  3. SIMVASTATIN [Suspect]
     Indication: ILL-DEFINED DISORDER
     Dosage: 20 MG (DAILY), ORAL
     Route: 048
     Dates: end: 20030501
  4. VERAPAMIL [Concomitant]
  5. ALLOPURINOL [Concomitant]
  6. AMIODARONE HCL [Concomitant]
  7. DOXAZOSIN MESYLATE [Concomitant]
  8. ROFECOXIB [Concomitant]
  9. ALL OTHER THERAPEUTIC PRODUCTS (ALL OTHER THERAPEUTIC PRODUCTS) [Concomitant]

REACTIONS (7)
  - BLOOD PRESSURE ABNORMAL [None]
  - CONTUSION [None]
  - INSOMNIA [None]
  - MEDICATION ERROR [None]
  - PAIN [None]
  - PLATELET COUNT DECREASED [None]
  - RASH MACULAR [None]
